FAERS Safety Report 24786248 (Version 1)
Quarter: 2024Q4

REPORT INFORMATION
  Report Type: Spontaneous
  Country: JP (occurrence: JP)
  Receive Date: 20241229
  Receipt Date: 20241229
  Transmission Date: 20250114
  Serious: Yes (Death, Life-Threatening, Hospitalization, Other)
  Sender: ASTELLAS
  Company Number: JP-ASTELLAS-2024-AER-023229

PATIENT
  Age: 8 Decade
  Sex: Male

DRUGS (5)
  1. PADCEV [Suspect]
     Active Substance: ENFORTUMAB VEDOTIN\ENFORTUMAB VEDOTIN-EJFV
     Indication: Transitional cell carcinoma
     Dosage: ADMINISTERED TWO CONSECUTIVE WEEKS, AND THE THIRD WEEK WAS DISCONTINUED
     Route: 042
     Dates: start: 20241107, end: 20241118
  2. KEYTRUDA [Concomitant]
     Active Substance: PEMBROLIZUMAB
     Indication: Product used for unknown indication
     Route: 065
     Dates: start: 20241107
  3. BETAMETHASONE [Concomitant]
     Active Substance: BETAMETHASONE
     Indication: Rash
     Route: 061
     Dates: start: 20241109
  4. BETAMETHASONE [Concomitant]
     Active Substance: BETAMETHASONE
     Indication: Drug eruption
     Route: 061
     Dates: start: 20241208
  5. FEXOFENADINE [Concomitant]
     Active Substance: FEXOFENADINE HYDROCHLORIDE
     Indication: Pruritus
     Route: 065
     Dates: start: 20241113

REACTIONS (4)
  - Pneumonia bacterial [Fatal]
  - Bronchopulmonary aspergillosis [Fatal]
  - Pulmonary toxicity [Fatal]
  - Rash pruritic [Unknown]

NARRATIVE: CASE EVENT DATE: 20241109
